FAERS Safety Report 22110897 (Version 1)
Quarter: 2023Q1

REPORT INFORMATION
  Report Type: Spontaneous
  Country: US (occurrence: US)
  Receive Date: 20230317
  Receipt Date: 20230317
  Transmission Date: 20230418
  Serious: No
  Sender: FDA-Public Use
  Company Number: US-PFIZER INC-PV202300049319

PATIENT
  Age: 60 Year
  Sex: Female

DRUGS (2)
  1. IBRANCE [Suspect]
     Active Substance: PALBOCICLIB
     Indication: Neoplasm
     Dosage: UNK
  2. IBRANCE [Suspect]
     Active Substance: PALBOCICLIB
     Indication: Neoplasm malignant

REACTIONS (1)
  - Confusional state [Unknown]
